FAERS Safety Report 8553271-4 (Version None)
Quarter: 2012Q3

REPORT INFORMATION
  Report Type: 
  Country: None (occurrence: None)
  Receive Date: 20120731
  Receipt Date: 20100811
  Transmission Date: 20120928
  Serious: Yes (Hospitalization, Other)
  Sender: FDA-Public Use
  Company Number: US-BAYER-201025673NA

PATIENT
  Age: 29 Year
  Sex: Female
  Weight: 61.818 kg

DRUGS (7)
  1. BROMPHENIRAMINE [Concomitant]
     Dates: start: 20080115
  2. BISMUTH SUBSALICYLATE [Concomitant]
     Indication: DIARRHOEA
     Dates: start: 20080201, end: 20080420
  3. ACETAMINOPHEN [Concomitant]
     Indication: PAIN
     Dates: start: 20080201, end: 20080428
  4. LORATADINE [Concomitant]
  5. YASMIN [Suspect]
     Indication: CONTRACEPTION
     Route: 048
     Dates: start: 20071101, end: 20080301
  6. DIPROLENE [Concomitant]
     Dosage: .05 %
     Dates: start: 20080115
  7. BROMPHENIRAMINE MALEATE + PSEUDOEPHEDRINE HCL [Concomitant]
     Indication: MULTIPLE ALLERGIES

REACTIONS (9)
  - CHOLECYSTITIS CHRONIC [None]
  - PAIN [None]
  - DIARRHOEA [None]
  - ABDOMINAL PAIN UPPER [None]
  - CHOLELITHIASIS [None]
  - GALLBLADDER DISORDER [None]
  - BILIARY COLIC [None]
  - HAEMATOCHEZIA [None]
  - CHOLESTEROSIS [None]
